FAERS Safety Report 7744198-6 (Version None)
Quarter: 2011Q3

REPORT INFORMATION
  Report Type: 
  Country: None (occurrence: None)
  Receive Date: 20110912
  Receipt Date: 20110906
  Transmission Date: 20111222
  Serious: Yes (Hospitalization, Other)
  Sender: FDA-Public Use
  Company Number: FR-PFIZER INC-2011207642

PATIENT
  Age: 78 Year
  Sex: Female
  Weight: 53 kg

DRUGS (7)
  1. ATORVASTATIN CALCIUM [Suspect]
     Indication: HYPERCHOLESTEROLAEMIA
     Dosage: 10 MG, 1X/DAY
     Route: 048
     Dates: start: 20110601, end: 20110701
  2. FLECTOR [Suspect]
     Indication: SCIATICA
  3. KETOPROFEN [Suspect]
     Indication: MYALGIA
     Dosage: UNK
     Route: 003
     Dates: start: 20110701, end: 20110801
  4. FLECTOR [Suspect]
     Indication: MYALGIA
     Dosage: UNK
     Route: 003
     Dates: start: 20110701, end: 20110801
  5. FENOFIBRATE [Suspect]
     Indication: HYPERCHOLESTEROLAEMIA
     Dosage: 200 MG, 1X/DAY
     Route: 048
     Dates: start: 20090101, end: 20110811
  6. VALSARTAN  AND HYDROCHLOROTHIAZIDE [Concomitant]
     Dosage: 160/25
  7. KETOPROFEN [Suspect]
     Indication: SCIATICA

REACTIONS (5)
  - NEURALGIA [None]
  - RENAL FAILURE ACUTE [None]
  - BLOOD CREATINE PHOSPHOKINASE INCREASED [None]
  - INTERVERTEBRAL DISC PROTRUSION [None]
  - MYALGIA [None]
